FAERS Safety Report 6226739-3 (Version None)
Quarter: 2009Q2

REPORT INFORMATION
  Report Type: 
  Country: None (occurrence: None)
  Receive Date: 20090612
  Receipt Date: 20090603
  Transmission Date: 20091009
  Serious: Yes (Death)
  Sender: FDA-Public Use
  Company Number: JP-ROCHE-637265

PATIENT
  Age: 56 Year
  Sex: Female

DRUGS (3)
  1. XELODA [Suspect]
     Indication: BREAST CANCER METASTATIC
     Dosage: DRUG NAME: XELODA 300
     Route: 048
  2. TAXOTERE [Concomitant]
     Route: 041
  3. HERCEPTIN [Concomitant]
     Route: 041

REACTIONS (1)
  - DISEASE PROGRESSION [None]
